FAERS Safety Report 13046410 (Version 1)
Quarter: 2016Q4

REPORT INFORMATION
  Report Type: Spontaneous
  Country: US (occurrence: US)
  Receive Date: 20161220
  Receipt Date: 20161220
  Transmission Date: 20170207
  Serious: Yes (Hospitalization, Other)
  Sender: FDA-Public Use
  Company Number: US-PFIZER INC-2016575642

PATIENT
  Sex: Male

DRUGS (1)
  1. CYTARABINE. [Suspect]
     Active Substance: CYTARABINE
     Indication: ACUTE MYELOID LEUKAEMIA
     Dosage: 20 MG, CYCLIC (TWICE A DAY (B.I.D.) ON DAYS 1 THROUGH 14 IN 42- DAY)
     Route: 058
     Dates: start: 20160412

REACTIONS (5)
  - Fatigue [Unknown]
  - Neoplasm progression [Unknown]
  - Malaise [Unknown]
  - Febrile neutropenia [Unknown]
  - Nausea [Unknown]
